FAERS Safety Report 7211408-3 (Version None)
Quarter: 2011Q1

REPORT INFORMATION
  Report Type: 
  Country: None (occurrence: None)
  Receive Date: 20110105
  Receipt Date: 20101227
  Transmission Date: 20110831
  Serious: Yes (Hospitalization)
  Sender: FDA-Public Use
  Company Number: US-ASTRAZENECA-2010SE60961

PATIENT
  Sex: Female

DRUGS (2)
  1. BLOOD PRESSURE MED [Concomitant]
  2. SYMBICORT [Suspect]
     Indication: CHRONIC OBSTRUCTIVE PULMONARY DISEASE
     Dosage: 2 PUFFS
     Route: 055

REACTIONS (12)
  - DYSPHAGIA [None]
  - EYE PAIN [None]
  - APPARENT DEATH [None]
  - EAR PAIN [None]
  - SWOLLEN TONGUE [None]
  - DYSPHONIA [None]
  - APHAGIA [None]
  - ORAL INFECTION [None]
  - PHARYNGEAL ERYTHEMA [None]
  - OROPHARYNGEAL PAIN [None]
  - HOSPITALISATION [None]
  - FEELING COLD [None]
